FAERS Safety Report 19375862 (Version 1)
Quarter: 2021Q2

REPORT INFORMATION
  Report Type: Report from Study
  Country: CA (occurrence: CA)
  Receive Date: 20210604
  Receipt Date: 20210604
  Transmission Date: 20210717
  Serious: Yes (Other)
  Sender: FDA-Public Use
  Company Number: CA-KYOWAKIRIN-2021BKK008964

PATIENT

DRUGS (4)
  1. VITAMIN D [VITAMIN D NOS] [Suspect]
     Active Substance: VITAMIN D NOS
     Indication: PRODUCT USED FOR UNKNOWN INDICATION
     Dosage: 1000 IU, DAILY
     Route: 048
  2. CRYSVITA [Suspect]
     Active Substance: BUROSUMAB-TWZA
     Dosage: 20 MG, Q 2 WEEKS
     Route: 058
     Dates: start: 20200710, end: 20210205
  3. CRYSVITA [Suspect]
     Active Substance: BUROSUMAB-TWZA
     Indication: HEREDITARY HYPOPHOSPHATAEMIC RICKETS
     Dosage: 10 MG, Q 2 WEEKS
     Route: 058
     Dates: start: 20191018, end: 20200626
  4. CRYSVITA [Suspect]
     Active Substance: BUROSUMAB-TWZA
     Dosage: 25 MG, Q 2 WEEKS
     Route: 058
     Dates: start: 20210222

REACTIONS (6)
  - Contraindicated product administered [Not Recovered/Not Resolved]
  - Intussusception [Recovered/Resolved]
  - Pain in extremity [Unknown]
  - Tooth loss [Unknown]
  - Tooth abscess [Unknown]
  - Nephrocalcinosis [Unknown]
